FAERS Safety Report 10573413 (Version 2)
Quarter: 2014Q4

REPORT INFORMATION
  Report Type: Report from Study
  Country: US (occurrence: US)
  Receive Date: 20141110
  Receipt Date: 20141118
  Transmission Date: 20150529
  Serious: Yes (Hospitalization)
  Sender: FDA-Public Use
  Company Number: US-SA-2014SA151877

PATIENT
  Age: 57 Year
  Sex: Female

DRUGS (6)
  1. ERYTHROMYCIN. [Concomitant]
     Active Substance: ERYTHROMYCIN
     Indication: IMPAIRED GASTRIC EMPTYING
     Dates: start: 20111118, end: 20130902
  2. DRONEDARONE [Suspect]
     Active Substance: DRONEDARONE
     Indication: ATRIAL FIBRILLATION
     Route: 065
     Dates: start: 20130830, end: 20131117
  3. ASPIRIN COMPOUND [Concomitant]
     Indication: CEREBROVASCULAR ACCIDENT
     Dates: start: 20130827, end: 20130904
  4. DIGOXIN. [Concomitant]
     Active Substance: DIGOXIN
     Indication: HEART RATE
     Dates: start: 20130827
  5. LOSARTAN [Concomitant]
     Active Substance: LOSARTAN
     Indication: HYPERTENSION
     Dates: start: 20130820
  6. RIVAROXABAN [Concomitant]
     Active Substance: RIVAROXABAN
     Indication: CEREBROVASCULAR ACCIDENT PROPHYLAXIS

REACTIONS (1)
  - Diabetic gastroparesis [Recovered/Resolved]

NARRATIVE: CASE EVENT DATE: 20131115
